FAERS Safety Report 12561153 (Version 2)
Quarter: 2016Q3

REPORT INFORMATION
  Report Type: Spontaneous
  Country: None (occurrence: NL)
  Receive Date: 20160715
  Receipt Date: 20160725
  Transmission Date: 20161109
  Serious: Yes (Hospitalization)
  Sender: FDA-Public Use
  Company Number: NL-MERCK KGAA-1055094

PATIENT

DRUGS (1)
  1. NOVOTHYROX [Suspect]
     Active Substance: LEVOTHYROXINE SODIUM

REACTIONS (5)
  - Hyperhidrosis [None]
  - Palpitations [None]
  - Tinnitus [None]
  - Chest discomfort [None]
  - Therapeutic response unexpected [None]
